FAERS Safety Report 6511835-3 (Version None)
Quarter: 2009Q4

REPORT INFORMATION
  Report Type: 
  Country: None (occurrence: None)
  Receive Date: 20091222
  Receipt Date: 20091215
  Transmission Date: 20100525
  Serious: Yes (Hospitalization)
  Sender: FDA-Public Use
  Company Number: PHHO2008DE09444

PATIENT
  Sex: Male
  Weight: 87.5 kg

DRUGS (3)
  1. CERTICAN [Suspect]
     Indication: RENAL TRANSPLANT
     Dosage: 8 MG
     Route: 048
     Dates: start: 20080314, end: 20080730
  2. MYFORTIC [Suspect]
     Indication: RENAL TRANSPLANT
     Dosage: UNK
     Dates: start: 20071214
  3. DECORTIN [Concomitant]
     Indication: RENAL TRANSPLANT
     Dosage: 7.5
     Dates: start: 20071213

REACTIONS (2)
  - BRONCHIAL CARCINOMA [None]
  - METASTASIS [None]
